FAERS Safety Report 11074895 (Version 1)
Quarter: 2015Q2

REPORT INFORMATION
  Report Type: Spontaneous
  Country: JP (occurrence: JP)
  Receive Date: 20150429
  Receipt Date: 20150429
  Transmission Date: 20150821
  Serious: Yes (Hospitalization)
  Sender: FDA-Public Use
  Company Number: JP-KOWA-15JP000290

PATIENT
  Sex: Male

DRUGS (1)
  1. LIVALO [Suspect]
     Active Substance: PITAVASTATIN CALCIUM
     Dosage: UNK, UNK
     Route: 048
     Dates: start: 20140107

REACTIONS (5)
  - Hypoaesthesia [Unknown]
  - Weight decreased [Unknown]
  - Gait disturbance [Unknown]
  - Asterixis [Unknown]
  - Depression [Unknown]

NARRATIVE: CASE EVENT DATE: 201404
